FAERS Safety Report 13068497 (Version 2)
Quarter: 2017Q1

REPORT INFORMATION
  Report Type: Report from Study
  Country: US (occurrence: US)
  Receive Date: 20161228
  Receipt Date: 20170228
  Transmission Date: 20170428
  Serious: No
  Sender: FDA-Public Use
  Company Number: PHEH2016US033719

PATIENT
  Sex: Male

DRUGS (2)
  1. ENTRESTO [Suspect]
     Active Substance: SACUBITRIL\VALSARTAN
     Dosage: 2 DF, BID (1 TABLET OF 49/51 IN THE MORNING AND 1 TABLET OF 97/103 IN THE EVENING)
     Route: 048
  2. ENTRESTO [Suspect]
     Active Substance: SACUBITRIL\VALSARTAN
     Indication: CARDIAC FAILURE
     Dosage: 200 MG (97/103 MG), BID
     Route: 048

REACTIONS (5)
  - Hypotension [Unknown]
  - Cough [Unknown]
  - Headache [Unknown]
  - Dizziness [Unknown]
  - Incorrect dose administered [Unknown]
